FAERS Safety Report 6740757-8 (Version None)
Quarter: 2010Q2

REPORT INFORMATION
  Report Type: 
  Country: None (occurrence: None)
  Receive Date: 20100524
  Receipt Date: 20100518
  Transmission Date: 20101027
  Serious: Yes (Other)
  Sender: FDA-Public Use
  Company Number: 2010SP023301

PATIENT
  Age: 23 Year
  Sex: Male

DRUGS (7)
  1. TEMODAR [Suspect]
     Indication: MIXED OLIGO-ASTROCYTOMA
     Dosage: 460 MG QD PO
     Route: 048
     Dates: start: 20080801
  2. TEMODAR [Suspect]
     Indication: MIXED OLIGO-ASTROCYTOMA
     Dosage: 460 MG QD PO
     Route: 048
     Dates: start: 20100306
  3. TYLENOL [Concomitant]
  4. NORTRIPTYLINE HCL [Concomitant]
  5. ZOFRAN [Concomitant]
  6. DILANTIN [Concomitant]
  7. COMPAZINE [Concomitant]

REACTIONS (5)
  - CAUSTIC INJURY [None]
  - GINGIVAL SWELLING [None]
  - REGURGITATION [None]
  - SWOLLEN TONGUE [None]
  - TONGUE BLISTERING [None]
